FAERS Safety Report 5222293-3 (Version None)
Quarter: 2007Q1

REPORT INFORMATION
  Report Type: 
  Country: None (occurrence: None)
  Receive Date: 20070129
  Receipt Date: 20060119
  Transmission Date: 20070707
  Serious: No
  Sender: FDA-Public Use
  Company Number: US-GLAXOSMITHKLINE-A0590059A

PATIENT
  Age: 53 Year
  Sex: Female

DRUGS (5)
  1. MEPRON [Suspect]
     Indication: LYME DISEASE
     Dosage: 750MG TWICE PER DAY
     Route: 048
     Dates: start: 20060117
  2. ZITHROMAX [Concomitant]
  3. GLUCOPHAGE [Concomitant]
  4. ASPIRIN [Concomitant]
  5. NEUPOGEN [Concomitant]

REACTIONS (1)
  - NAUSEA [None]
